FAERS Safety Report 6638855-2 (Version None)
Quarter: 2010Q1

REPORT INFORMATION
  Report Type: 
  Country: None (occurrence: None)
  Receive Date: 20100316
  Receipt Date: 20100316
  Transmission Date: 20100710
  Serious: Yes (Life-Threatening)
  Sender: FDA-Public Use
  Company Number: None

PATIENT
  Age: 32 Year
  Sex: Female
  Weight: 77.1115 kg

DRUGS (2)
  1. LAMICTAL CD [Suspect]
     Indication: BIPOLAR DISORDER
     Dates: start: 20080321, end: 20090621
  2. HALDOL [Suspect]
     Indication: DEPRESSION
     Dates: start: 20090622, end: 20100315

REACTIONS (5)
  - AMENORRHOEA [None]
  - AMNESIA [None]
  - COORDINATION ABNORMAL [None]
  - SOMNOLENCE [None]
  - WEIGHT INCREASED [None]
